FAERS Safety Report 14313840 (Version 1)
Quarter: 2017Q4

REPORT INFORMATION
  Report Type: Spontaneous
  Country: US (occurrence: US)
  Receive Date: 20171220
  Receipt Date: 20171220
  Transmission Date: 20180321
  Serious: Yes (Other)
  Sender: FDA-Public Use
  Company Number: None

PATIENT
  Age: 58 Year
  Sex: Female

DRUGS (1)
  1. AMPYRA [Suspect]
     Active Substance: DALFAMPRIDINE
     Indication: MULTIPLE SCLEROSIS
     Dosage: ABOUT ONE MONTH
     Route: 048

REACTIONS (4)
  - Dizziness [None]
  - Fall [None]
  - Arthralgia [None]
  - Tremor [None]

NARRATIVE: CASE EVENT DATE: 20171220
